FAERS Safety Report 25457243 (Version 1)
Quarter: 2025Q2

REPORT INFORMATION
  Report Type: Spontaneous
  Country: GB (occurrence: GB)
  Receive Date: 20250619
  Receipt Date: 20250619
  Transmission Date: 20250716
  Serious: Yes (Other)
  Sender: SANDOZ
  Company Number: GB-002147023-NVSC2024GB135330

PATIENT
  Age: 55 Year
  Sex: Male

DRUGS (3)
  1. CYCLOSPORINE [Suspect]
     Active Substance: CYCLOSPORINE
     Indication: Angiolymphoid hyperplasia with eosinophilia
     Route: 065
  2. PREDNISOLONE [Suspect]
     Active Substance: PREDNISOLONE
     Route: 065
  3. PREDNISOLONE [Suspect]
     Active Substance: PREDNISOLONE
     Indication: Angiolymphoid hyperplasia with eosinophilia
     Route: 065

REACTIONS (4)
  - Depressed level of consciousness [Unknown]
  - Rebound effect [Unknown]
  - Disturbance in attention [Unknown]
  - Product use in unapproved indication [Unknown]
